FAERS Safety Report 5696483-X (Version None)
Quarter: 2008Q2

REPORT INFORMATION
  Report Type: 
  Country: None (occurrence: None)
  Receive Date: 20080408
  Receipt Date: 20071206
  Transmission Date: 20081010
  Serious: Yes (Hospitalization)
  Sender: FDA-Public Use
  Company Number: US-BOEHRINGER INGELHEIM GMBH, GERMANY-2007-BP-01549BP

PATIENT
  Sex: Female
  Weight: 94 kg

DRUGS (24)
  1. MIRAPEX [Suspect]
     Indication: BIPOLAR DISORDER
     Dates: start: 19980709, end: 20050801
  2. K-DUR [Concomitant]
  3. ABILIFY [Concomitant]
  4. LIPITOR [Concomitant]
     Indication: BLOOD CHOLESTEROL INCREASED
  5. PROVIGIL [Concomitant]
  6. LEVOTHROID [Concomitant]
     Indication: HYPOTHYROIDISM
     Dates: start: 19920101
  7. EFFEXOR [Concomitant]
     Indication: DEPRESSION
     Dates: start: 20010718
  8. NORVASC [Concomitant]
  9. LAMICTAL [Concomitant]
     Indication: DEPRESSION
  10. DYAZIDE [Concomitant]
  11. LORAZEPAM [Concomitant]
     Dates: start: 20010701, end: 20030601
  12. CARBAMAZEPINE [Concomitant]
     Dates: start: 20010301, end: 20011019
  13. ULTRACET [Concomitant]
     Dates: start: 20040701
  14. NALTREXONE HYDROCHLORIDE [Concomitant]
  15. ZOLOFT [Concomitant]
  16. BUSPAR [Concomitant]
  17. TRAZODONE HCL [Concomitant]
     Dates: end: 20030601
  18. PRILOSEC [Concomitant]
  19. OXYCODONE AND ACETAMINOPHEN [Concomitant]
  20. TRIAMTERENE AND HYDROCHLOROTHIAZIDE [Concomitant]
  21. ZYPREXA [Concomitant]
     Dates: start: 20010201, end: 20030601
  22. TOPAMAX [Concomitant]
     Dates: start: 20051101
  23. DIOVAN [Concomitant]
  24. BLINDED STUDY DRUG NIH COMPOUND 757-X [Concomitant]
     Indication: MOOD ALTERED
     Dates: start: 19971001, end: 19980901

REACTIONS (9)
  - DEPRESSION [None]
  - ECONOMIC PROBLEM [None]
  - EMOTIONAL DISTRESS [None]
  - HYPERPHAGIA [None]
  - INJURY [None]
  - OBSESSIVE-COMPULSIVE DISORDER [None]
  - PATHOLOGICAL GAMBLING [None]
  - SUICIDAL IDEATION [None]
  - WEIGHT INCREASED [None]
